FAERS Safety Report 5153260-6 (Version None)
Quarter: 2006Q4

REPORT INFORMATION
  Report Type: 
  Country: None (occurrence: None)
  Receive Date: 20061117
  Receipt Date: 20061106
  Transmission Date: 20070319
  Serious: Yes (Other)
  Sender: FDA-Public Use
  Company Number: US-ROCHE-470426

PATIENT
  Sex: Male

DRUGS (2)
  1. ACCUTANE [Suspect]
     Indication: DRUG USE FOR UNKNOWN INDICATION
     Route: 065
     Dates: start: 19990315, end: 19990915
  2. ACCUTANE [Suspect]
     Route: 065
     Dates: start: 19970315, end: 19970815

REACTIONS (1)
  - MULTIPLE SCLEROSIS [None]
